FAERS Safety Report 7362867-7 (Version None)
Quarter: 2011Q1

REPORT INFORMATION
  Report Type: 
  Country: None (occurrence: None)
  Receive Date: 20110321
  Receipt Date: 20110310
  Transmission Date: 20110831
  Serious: No
  Sender: FDA-Public Use
  Company Number: US-BIOGENIDEC-2011BI009509

PATIENT
  Sex: Female

DRUGS (3)
  1. AVONEX [Concomitant]
     Indication: MULTIPLE SCLEROSIS
     Route: 030
     Dates: start: 19970201, end: 20070919
  2. TYSABRI [Suspect]
     Indication: MULTIPLE SCLEROSIS
     Route: 042
     Dates: start: 20071016
  3. AVONEX [Concomitant]
     Route: 030
     Dates: start: 20071001

REACTIONS (9)
  - ELECTROCARDIOGRAM Q WAVE ABNORMAL [None]
  - CHEST PAIN [None]
  - LETHARGY [None]
  - LOCALISED INFECTION [None]
  - OEDEMA PERIPHERAL [None]
  - PAIN IN EXTREMITY [None]
  - MOBILITY DECREASED [None]
  - ABASIA [None]
  - FATIGUE [None]
